FAERS Safety Report 4501928-4 (Version None)
Quarter: 2004Q4

REPORT INFORMATION
  Report Type: 
  Country: None (occurrence: None)
  Receive Date: 20041116
  Receipt Date: 20041111
  Transmission Date: 20050328
  Serious: Yes (Hospitalization)
  Sender: FDA-Public Use
  Company Number: PHBS2004CH15116

PATIENT
  Age: 71 Year
  Sex: Female

DRUGS (2)
  1. VOLTAREN [Suspect]
     Indication: BACK PAIN
     Dosage: 100 MG/DAY
     Dates: start: 20040612, end: 20040618
  2. ACETAMINOPHEN [Suspect]
     Indication: BACK PAIN
     Dates: start: 20040612

REACTIONS (5)
  - ANAEMIA HAEMOLYTIC AUTOIMMUNE [None]
  - FATIGUE [None]
  - HAEMOGLOBIN DECREASED [None]
  - PALLOR [None]
  - PALPITATIONS [None]
